FAERS Safety Report 13872155 (Version 1)
Quarter: 2017Q3

REPORT INFORMATION
  Report Type: Spontaneous
  Country: CN (occurrence: CN)
  Receive Date: 20170816
  Receipt Date: 20170816
  Transmission Date: 20171127
  Serious: Yes (Other)
  Sender: FDA-Public Use
  Company Number: CN-ROCHE-1975474

PATIENT
  Age: 83 Year
  Sex: Female
  Weight: 49 kg

DRUGS (6)
  1. ZHU SHE YONG XUE SHUAN TONG [Concomitant]
     Route: 041
     Dates: start: 20170615, end: 20170615
  2. CREATINE PHOSPHATE SODIUM [Concomitant]
     Active Substance: CREATINE
     Route: 041
     Dates: start: 20170615, end: 20170615
  3. ROCEPHIN [Suspect]
     Active Substance: CEFTRIAXONE SODIUM
     Indication: LUNG INFECTION
     Route: 041
     Dates: start: 20170615, end: 20170615
  4. GLUCOSE [Concomitant]
     Active Substance: DEXTROSE
     Dosage: SOLVENT FOR ZHU SHE YONG XUE SHUAN TONG
     Route: 041
     Dates: start: 20170615, end: 20170615
  5. GLUCOSE [Concomitant]
     Active Substance: DEXTROSE
     Dosage: SOLVENT FOR CREATINE PHOSPHATE SODIUM
     Route: 041
     Dates: start: 20170615, end: 20170615
  6. SODIUM CHLORIDE. [Concomitant]
     Active Substance: SODIUM CHLORIDE
     Route: 041
     Dates: start: 20170615, end: 20170615

REACTIONS (1)
  - Cardiac failure [Recovering/Resolving]

NARRATIVE: CASE EVENT DATE: 20170615
